FAERS Safety Report 6859653-0 (Version None)
Quarter: 2010Q3

REPORT INFORMATION
  Report Type: 
  Country: None (occurrence: None)
  Receive Date: 20100719
  Receipt Date: 20100719
  Transmission Date: 20110219
  Serious: Yes (Other)
  Sender: FDA-Public Use
  Company Number: None

PATIENT
  Sex: Female
  Weight: 83.9154 kg

DRUGS (1)
  1. GABAPENTIN [Suspect]
     Indication: HERPES ZOSTER
     Dosage: 2 A DAY TWICE DAYLY
     Dates: start: 20100211, end: 20100621

REACTIONS (3)
  - DIPLOPIA [None]
  - DIZZINESS [None]
  - VISUAL IMPAIRMENT [None]
